FAERS Safety Report 6292695-5 (Version None)
Quarter: 2009Q3

REPORT INFORMATION
  Report Type: 
  Country: None (occurrence: None)
  Receive Date: 20090731
  Receipt Date: 20090723
  Transmission Date: 20100115
  Serious: Yes (Other)
  Sender: FDA-Public Use
  Company Number: A0759741A

PATIENT
  Age: 69 Year
  Sex: Male
  Weight: 98.4 kg

DRUGS (2)
  1. ALTABAX [Suspect]
     Indication: PRURITUS
     Dosage: 1APP SINGLE DOSE
     Route: 061
     Dates: start: 20081114, end: 20081114
  2. BLOOD PRESSURE MEDICATION [Concomitant]

REACTIONS (5)
  - APPLICATION SITE PRURITUS [None]
  - APPLICATION SITE URTICARIA [None]
  - BURNING SENSATION [None]
  - RASH [None]
  - RASH MACULO-PAPULAR [None]
